FAERS Safety Report 7430302-6 (Version None)
Quarter: 2011Q2

REPORT INFORMATION
  Report Type: 
  Country: None (occurrence: None)
  Receive Date: 20110421
  Receipt Date: 20110415
  Transmission Date: 20111010
  Serious: Yes (Death)
  Sender: FDA-Public Use
  Company Number: US-ELI_LILLY_AND_COMPANY-US201103000674

PATIENT
  Sex: Male
  Weight: 73.016 kg

DRUGS (11)
  1. CORTICOSTEROIDS [Concomitant]
     Dosage: 4 MG, TID
     Route: 048
  2. CISPLATIN [Concomitant]
  3. SYMBICORT [Concomitant]
     Dosage: UNK, UNKNOWN
     Route: 065
  4. VITAMIN B-12 [Concomitant]
     Dosage: 1 MG, UNKNOWN
     Route: 030
     Dates: start: 20100326
  5. FOLIC ACID [Concomitant]
     Dosage: 1 MG, UNKNOWN
     Route: 048
     Dates: start: 20100326
  6. ASPIRIN [Concomitant]
     Dosage: UNK, UNKNOWN
     Route: 065
  7. ALBUTEROL [Concomitant]
     Dosage: UNK, UNKNOWN
     Route: 065
  8. LORAZEPAM [Concomitant]
     Dosage: UNK, UNKNOWN
     Route: 065
  9. ALIMTA [Suspect]
     Indication: LUNG NEOPLASM MALIGNANT
     Dosage: 1000 MG, EVERY 3 WEEKS
     Route: 042
     Dates: start: 20100401
  10. MERALOP [Concomitant]
     Dosage: UNK, UNKNOWN
     Route: 065
  11. PROMETHAZINE [Concomitant]

REACTIONS (1)
  - NEOPLASM MALIGNANT [None]
